FAERS Safety Report 6150262-8 (Version None)
Quarter: 2009Q2

REPORT INFORMATION
  Report Type: 
  Country: None (occurrence: None)
  Receive Date: 20090409
  Receipt Date: 20090403
  Transmission Date: 20091009
  Serious: Yes (Death, Hospitalization, Disabling, Other)
  Sender: FDA-Public Use
  Company Number: US-PFIZER INC-2007007065

PATIENT
  Sex: Female

DRUGS (2)
  1. CELEBREX [Suspect]
     Indication: ARTHRITIS
     Dates: end: 20050101
  2. CELEBREX [Suspect]
     Indication: PAIN

REACTIONS (9)
  - ABASIA [None]
  - CARDIAC DISORDER [None]
  - CARDIAC PACEMAKER INSERTION [None]
  - DEATH [None]
  - FEELING ABNORMAL [None]
  - PNEUMONIA [None]
  - SWELLING [None]
  - URINARY TRACT INFECTION [None]
  - VIRAL INFECTION [None]
